FAERS Safety Report 7757489-X (Version None)
Quarter: 2011Q3

REPORT INFORMATION
  Report Type: 
  Country: None (occurrence: None)
  Receive Date: 20110916
  Receipt Date: 20110909
  Transmission Date: 20111222
  Serious: Yes (Other)
  Sender: FDA-Public Use
  Company Number: JP-CEPHALON-2011003996

PATIENT
  Age: 51 Year
  Sex: Male

DRUGS (2)
  1. TREANDA [Suspect]
     Indication: MANTLE CELL LYMPHOMA
     Route: 042
     Dates: start: 20110419
  2. RITUXIMAB [Concomitant]
     Indication: B-LYMPHOCYTE COUNT
     Dates: start: 20110419, end: 20110419

REACTIONS (1)
  - CYTOMEGALOVIRUS TEST POSITIVE [None]
